FAERS Safety Report 7434853-X (Version None)
Quarter: 2011Q2

REPORT INFORMATION
  Report Type: 
  Country: None (occurrence: None)
  Receive Date: 20110425
  Receipt Date: 20110415
  Transmission Date: 20111010
  Serious: Yes (Other)
  Sender: FDA-Public Use
  Company Number: JP-ROCHE-717439

PATIENT
  Sex: Female
  Weight: 2.8 kg

DRUGS (1)
  1. OSELTAMIVIR [Suspect]
     Indication: ANTIVIRAL PROPHYLAXIS
     Dosage: REPORTED AS: TAMIFLU CAPSULE (OSELTAMIVIR), DOSE FORM: ORAL FORMATION(NOT OTHERWISE SPECIFIED).
     Route: 064
     Dates: start: 20091125, end: 20091204

REACTIONS (3)
  - PYREXIA [None]
  - VENTRICULAR SEPTAL DEFECT [None]
  - DRUG EXPOSURE DURING PREGNANCY [None]
